FAERS Safety Report 6160731-2 (Version None)
Quarter: 2009Q2

REPORT INFORMATION
  Report Type: 
  Country: None (occurrence: None)
  Receive Date: 20090420
  Receipt Date: 20090410
  Transmission Date: 20091009
  Serious: Yes (Hospitalization)
  Sender: FDA-Public Use
  Company Number: JP-ABBOTT-09P-087-0567983-00

PATIENT
  Age: 1 Month
  Sex: Female

DRUGS (10)
  1. EURODIN TABLETS [Suspect]
     Indication: DRUG EXPOSURE DURING PREGNANCY
     Route: 064
  2. LUTEONIN [Suspect]
     Indication: DRUG EXPOSURE DURING PREGNANCY
     Route: 064
  3. WYPAX [Suspect]
     Indication: DRUG EXPOSURE DURING PREGNANCY
     Route: 064
  4. MAGLAX [Suspect]
     Indication: DRUG EXPOSURE DURING PREGNANCY
     Route: 064
  5. ALLEGRA [Suspect]
     Indication: DRUG EXPOSURE DURING PREGNANCY
     Route: 064
  6. RIVOTRIL [Suspect]
     Indication: DRUG EXPOSURE DURING PREGNANCY
     Route: 064
  7. FLUVOXAMINE MALEATE [Suspect]
     Indication: DRUG EXPOSURE DURING PREGNANCY
     Route: 064
  8. MYSLEE [Suspect]
     Indication: DRUG EXPOSURE DURING PREGNANCY
     Route: 064
  9. CONTOMIN [Suspect]
     Indication: DRUG EXPOSURE DURING PREGNANCY
     Route: 064
  10. FERROMIA [Suspect]
     Indication: DRUG EXPOSURE DURING PREGNANCY
     Route: 064

REACTIONS (2)
  - DRUG EXPOSURE DURING PREGNANCY [None]
  - DRUG WITHDRAWAL SYNDROME NEONATAL [None]
